FAERS Safety Report 13138793 (Version 1)
Quarter: 2017Q1

REPORT INFORMATION
  Report Type: Spontaneous
  Country: US (occurrence: US)
  Receive Date: 20170123
  Receipt Date: 20170123
  Transmission Date: 20170428
  Serious: No
  Sender: FDA-Public Use
  Company Number: US-PFIZER INC-2017025165

PATIENT
  Age: 34 Year
  Sex: Male
  Weight: 93.89 kg

DRUGS (4)
  1. LYRICA [Suspect]
     Active Substance: PREGABALIN
     Dosage: 450 MG, DAILY (6 CAPSULES)
  2. LYRICA [Suspect]
     Active Substance: PREGABALIN
     Indication: TRIGEMINAL NEURALGIA
     Dosage: 75 MG, 2X/DAY
     Dates: start: 201701
  3. OXYCODONE [Concomitant]
     Active Substance: OXYCODONE
     Indication: BACK PAIN
     Dosage: UNK UNK, 4X/DAY, (10/325MG) (EVERY 6 HOURS)
  4. LYRICA [Suspect]
     Active Substance: PREGABALIN
     Dosage: THREE OR FOUR CAPSULES IN THE EVENING

REACTIONS (5)
  - Drug ineffective [Unknown]
  - Ejaculation disorder [Not Recovered/Not Resolved]
  - Erectile dysfunction [Unknown]
  - Anorgasmia [Unknown]
  - Intentional product use issue [Unknown]
